FAERS Safety Report 6443180-9 (Version None)
Quarter: 2009Q4

REPORT INFORMATION
  Report Type: 
  Country: None (occurrence: None)
  Receive Date: 20091117
  Receipt Date: 20091110
  Transmission Date: 20100525
  Serious: Yes (Hospitalization)
  Sender: FDA-Public Use
  Company Number: B0604824A

PATIENT
  Sex: Female
  Weight: 50 kg

DRUGS (6)
  1. AVANDAMET [Suspect]
     Indication: DIABETES MELLITUS
     Dosage: 1Z TWICE PER DAY
     Route: 048
  2. GLYBURIDE [Suspect]
     Indication: DIABETES MELLITUS
     Dosage: 5MG THREE TIMES PER DAY
     Route: 048
     Dates: start: 20091020
  3. ASPIRIN [Concomitant]
     Dosage: 10MG PER DAY
     Route: 065
  4. FOSINOPRIL SODIUM AND HYDROCHLOROTHIAZIDE [Concomitant]
     Dosage: 20MG PER DAY
     Route: 065
  5. LASIX [Concomitant]
     Dosage: 30MG PER DAY
     Route: 065
  6. DIGOXIN [Concomitant]
     Dosage: .25MG PER DAY
     Route: 065

REACTIONS (4)
  - CHILLS [None]
  - HYPERHIDROSIS [None]
  - HYPOGLYCAEMIA [None]
  - SOMNOLENCE [None]
